FAERS Safety Report 4424435-6 (Version None)
Quarter: 2004Q3

REPORT INFORMATION
  Report Type: 
  Country: None (occurrence: None)
  Receive Date: 20040719
  Receipt Date: 20040105
  Transmission Date: 20050211
  Serious: Yes (Hospitalization)
  Sender: FDA-Public Use
  Company Number: 189856

PATIENT
  Age: 53 Year
  Sex: Female
  Weight: 75.2971 kg

DRUGS (3)
  1. AVONEX [Suspect]
     Indication: MULTIPLE SCLEROSIS
     Dosage: 30 MCG QW IM
     Route: 030
     Dates: start: 20000101
  2. PROCARDIA [Concomitant]
  3. PROVIGIL [Concomitant]

REACTIONS (4)
  - FIBROMYALGIA [None]
  - MULTIPLE SCLEROSIS RELAPSE [None]
  - STRESS SYMPTOMS [None]
  - WEIGHT DECREASED [None]
